FAERS Safety Report 8056614-3 (Version None)
Quarter: 2012Q1

REPORT INFORMATION
  Report Type: 
  Country: None (occurrence: None)
  Receive Date: 20120119
  Receipt Date: 20120109
  Transmission Date: 20120608
  Serious: Yes (Other)
  Sender: FDA-Public Use
  Company Number: CHPA2012US000808

PATIENT
  Age: 76 Year
  Sex: Female

DRUGS (1)
  1. EXCEDRIN EXTRA STRENGTH CAPLETS [Suspect]
     Indication: MIGRAINE
     Dosage: 1DF AT A TIME, UP TO 4 A DAY
     Route: 048

REACTIONS (6)
  - INCORRECT DRUG ADMINISTRATION DURATION [None]
  - RENAL FAILURE CHRONIC [None]
  - HYPERTENSION [None]
  - UNDERDOSE [None]
  - CEREBROVASCULAR ACCIDENT [None]
  - JOINT SWELLING [None]
